FAERS Safety Report 4278585-8 (Version None)
Quarter: 2004Q1

REPORT INFORMATION
  Report Type: 
  Country: None (occurrence: None)
  Receive Date: 20040122
  Receipt Date: 20040116
  Transmission Date: 20041129
  Serious: No
  Sender: FDA-Public Use
  Company Number: 2003UW15841

PATIENT
  Age: 42 Year
  Sex: Female
  Weight: 118.8424 kg

DRUGS (3)
  1. FASLODEX [Suspect]
     Indication: BREAST CANCER
     Dosage: 250 MG/5 ML
     Dates: start: 20030221, end: 20031126
  2. FASLODEX [Suspect]
     Indication: METASTASES TO BONE
     Dosage: 250 MG/5 ML
     Dates: start: 20030221, end: 20031126
  3. ZOMETA [Concomitant]

REACTIONS (7)
  - CHEST DISCOMFORT [None]
  - COUGH [None]
  - DYSPNOEA [None]
  - FATIGUE [None]
  - PULSE ABNORMAL [None]
  - SPEECH DISORDER [None]
  - VOMITING [None]
